FAERS Safety Report 9896972 (Version 1)
Quarter: 2014Q1

REPORT INFORMATION
  Report Type: Spontaneous
  Country: US (occurrence: US)
  Receive Date: 20140214
  Receipt Date: 20140214
  Transmission Date: 20141002
  Serious: Yes (Hospitalization)
  Sender: FDA-Public Use
  Company Number: US-BIOGENIDEC-2014BI013306

PATIENT
  Age: 51 Year
  Sex: Female

DRUGS (3)
  1. AVONEX [Suspect]
     Indication: MULTIPLE SCLEROSIS
     Route: 030
     Dates: start: 20020913, end: 20131224
  2. PROPOFOL [Concomitant]
     Indication: ORTHOPAEDIC PROCEDURE
  3. VERSED [Concomitant]
     Indication: ORTHOPAEDIC PROCEDURE

REACTIONS (5)
  - Anaesthetic complication [Recovered/Resolved]
  - Orthopaedic procedure [Recovered/Resolved]
  - Blood pressure abnormal [Recovered/Resolved]
  - Respiratory disorder [Recovered/Resolved]
  - Hypoaesthesia [Recovered/Resolved]
